FAERS Safety Report 25277825 (Version 1)
Quarter: 2025Q2

REPORT INFORMATION
  Report Type: Spontaneous
  Country: US (occurrence: None)
  Receive Date: 20250507
  Receipt Date: 20250507
  Transmission Date: 20250716
  Serious: Yes (Hospitalization)
  Sender: FDA-CTU
  Company Number: None

PATIENT
  Age: 55 Year
  Sex: Female
  Weight: 52.7 kg

DRUGS (7)
  1. CYCLOPHOSPHAMIDE [Suspect]
     Active Substance: CYCLOPHOSPHAMIDE
     Dates: end: 20250417
  2. CYTARABINE [Suspect]
     Active Substance: CYTARABINE
     Dates: end: 20250414
  3. SPRYCEL [Suspect]
     Active Substance: DASATINIB
     Dates: end: 20250425
  4. DEXAMETHASONE [Suspect]
     Active Substance: DEXAMETHASONE
     Dates: end: 20240417
  5. DOXORUBICIN HYDROCHLORIDE [Suspect]
     Active Substance: DOXORUBICIN HYDROCHLORIDE
     Dates: end: 20250417
  6. METHOTREXATE [Suspect]
     Active Substance: METHOTREXATE
     Dates: end: 20250421
  7. VINCRISTINE SULFATE [Suspect]
     Active Substance: VINCRISTINE SULFATE
     Dates: end: 20240417

REACTIONS (8)
  - Rectal haemorrhage [None]
  - Stomatitis [None]
  - Emotional distress [None]
  - White blood cell count decreased [None]
  - Clostridium test positive [None]
  - Sepsis [None]
  - Cardiac murmur [None]
  - Mitral valve incompetence [None]

NARRATIVE: CASE EVENT DATE: 20250425
